FAERS Safety Report 12948254 (Version 1)
Quarter: 2016Q4

REPORT INFORMATION
  Report Type: Spontaneous
  Country: AU (occurrence: AU)
  Receive Date: 20161116
  Receipt Date: 20161116
  Transmission Date: 20170207
  Serious: Yes (Other)
  Sender: FDA-Public Use
  Company Number: AU-MYLANLABS-2016M1049319

PATIENT

DRUGS (10)
  1. GLUCAGON. [Concomitant]
     Active Substance: GLUCAGON
     Indication: HYPERINSULINISM
     Route: 041
  2. DIAZOXIDE [Concomitant]
     Active Substance: DIAZOXIDE
     Indication: PRODUCT USED FOR UNKNOWN INDICATION
     Dosage: 20MG/KG/DAY FOR 5 DAYS
     Route: 065
  3. OCTREOTIDE. [Suspect]
     Active Substance: OCTREOTIDE
     Dosage: STABILISED AT 36MCG/KG/DAY
     Route: 058
  4. MALTODEXTRIN [Concomitant]
     Active Substance: MALTODEXTRIN
     Dosage: 3.5MG/KG/MINUTE GLUCOSE OVERNIGHT
     Route: 065
  5. OCTREOTIDE. [Suspect]
     Active Substance: OCTREOTIDE
     Indication: HYPERINSULINISM
     Dosage: INITIATED AT 26MCG/KG/DAY;AT AGE OF 10WEEKS 27MCG/KG/DAY; STABILISED AT 36MCG/KG/DAY
     Route: 058
  6. OCTREOTIDE. [Suspect]
     Active Substance: OCTREOTIDE
     Dosage: AT THE AGE OF 10WEEKS 27MCG/KG/DAY; STABILISED AT 36MCG/KG/DAY
     Route: 058
  7. GLUCOSE [Concomitant]
     Active Substance: DEXTROSE
     Indication: HYPERINSULINISM
     Dosage: 12MG/KG/MIN
     Route: 041
  8. SIROLIMUS. [Suspect]
     Active Substance: SIROLIMUS
     Indication: PRODUCT USED FOR UNKNOWN INDICATION
     Dosage: 0.5MG/M2/DAY
     Route: 065
  9. MALTODEXTRIN [Concomitant]
     Active Substance: MALTODEXTRIN
     Indication: PRODUCT USED FOR UNKNOWN INDICATION
     Dosage: NOCTURNAL GASTROSTOMY FEEDS EQUIVALENT TO 11MG/KG/MIN GLUCOSE AND PLUS 3-HOURLY DAYTIME BOLUS FEEDS
     Route: 065
  10. MALTODEXTRIN [Concomitant]
     Active Substance: MALTODEXTRIN
     Dosage: PLUS 3 HOURLY DAYTIME BOLUS FEEDS; REDUCED TO 3.5MG/KG/MINUTE GLUCOSE OVERNIGHT
     Route: 065

REACTIONS (2)
  - Failure to thrive [Unknown]
  - Respiratory syncytial virus infection [Unknown]
